FAERS Safety Report 17290043 (Version 1)
Quarter: 2020Q1

REPORT INFORMATION
  Report Type: Spontaneous
  Country: FR (occurrence: FR)
  Receive Date: 20200120
  Receipt Date: 20200120
  Transmission Date: 20200409
  Serious: Yes (Other)
  Sender: FDA-Public Use
  Company Number: FR-CELLTRION INC.-2020FR017747

PATIENT

DRUGS (4)
  1. RITUXIMAB (UNKNOWN) [Suspect]
     Active Substance: RITUXIMAB
     Indication: NECROTISING MYOSITIS
     Dosage: INDUCTION DOSE: 1G ON DAY 0 AND ON DAY 15
     Route: 042
  2. RITUXIMAB (UNKNOWN) [Suspect]
     Active Substance: RITUXIMAB
     Dosage: MAINTENANCE DOSE: 375 MG/M2 AT MONTH 5 AND 1GM AT MONTH 10
     Route: 042
  3. METHOTREXATE. [Suspect]
     Active Substance: METHOTREXATE
     Indication: NECROTISING MYOSITIS
     Dosage: UNK
  4. AZATHIOPRINE. [Suspect]
     Active Substance: AZATHIOPRINE
     Indication: NECROTISING MYOSITIS
     Dosage: ADDITIONAL INFO: IMMUNOSUPPRESSANT DOSE WAS TAPERED

REACTIONS (5)
  - Lymphopenia [Unknown]
  - Product use in unapproved indication [Unknown]
  - Off label use [Unknown]
  - Kaposi^s sarcoma [Recovering/Resolving]
  - Human herpesvirus 8 infection [Unknown]
